FAERS Safety Report 9561754 (Version 1)
Quarter: 2013Q3

REPORT INFORMATION
  Report Type: Spontaneous
  Country: US (occurrence: US)
  Receive Date: 20130927
  Receipt Date: 20130927
  Transmission Date: 20140515
  Serious: Yes (Other)
  Sender: FDA-Public Use
  Company Number: US-SANOFI-AVENTIS-2013SA092606

PATIENT
  Age: 37 Year
  Sex: Female
  Weight: 66 kg

DRUGS (31)
  1. ENOXAPARIN SODIUM - WINTHROP [Suspect]
     Indication: THROMBOSIS
     Route: 065
     Dates: start: 20110529
  2. ENOXAPARIN SODIUM - WINTHROP [Suspect]
     Indication: DEEP VEIN THROMBOSIS
     Route: 065
     Dates: start: 20110529
  3. ENOXAPARIN SODIUM - WINTHROP [Suspect]
     Indication: THROMBOSIS
     Route: 065
  4. ENOXAPARIN SODIUM - WINTHROP [Suspect]
     Indication: DEEP VEIN THROMBOSIS
     Route: 065
  5. ENOXAPARIN SODIUM - WINTHROP [Suspect]
     Indication: THROMBOSIS
     Route: 065
  6. ENOXAPARIN SODIUM - WINTHROP [Suspect]
     Indication: DEEP VEIN THROMBOSIS
     Route: 065
  7. ENOXAPARIN SODIUM - WINTHROP [Suspect]
     Indication: THROMBOSIS
     Route: 065
     Dates: start: 20130826
  8. ENOXAPARIN SODIUM - WINTHROP [Suspect]
     Indication: DEEP VEIN THROMBOSIS
     Route: 065
     Dates: start: 20130826
  9. PROLIA [Concomitant]
     Dosage: Q6 MONTHS
     Route: 058
     Dates: end: 201307
  10. VITAMIN B12 [Concomitant]
     Dosage: MONTHLY
  11. PROTONIX [Concomitant]
     Route: 042
  12. ZOFRAN [Concomitant]
     Dosage: AM + 1-2 Q4-6H PM
  13. PEPCID [Concomitant]
  14. BENADRYL [Concomitant]
     Route: 042
  15. PHENERGAN [Concomitant]
     Route: 042
  16. SOLU-MEDROL [Concomitant]
     Dosage: BEFORE (AND AFTER) LIPID INFUSION FRI/(SAT)
  17. XOLAIR [Concomitant]
     Dosage: MONTHLY
     Route: 058
  18. SINGULAIR [Concomitant]
  19. ALBUTEROL [Concomitant]
  20. ALL OTHER THERAPEUTIC PRODUCTS [Concomitant]
  21. DULERA [Concomitant]
  22. EFFEXOR [Concomitant]
  23. LAMICTAL [Concomitant]
  24. WELLBUTRIN [Concomitant]
  25. ADDERALL [Concomitant]
  26. ATIVAN [Concomitant]
     Dosage: ^/2-1 QID PM
  27. NAPROXEN [Concomitant]
  28. RESTASIS [Concomitant]
     Dosage: DROP UO BID
  29. TPN [Concomitant]
  30. ALL OTHER THERAPEUTIC PRODUCTS [Concomitant]
     Dosage: 2 PUFFS Q4H PM
  31. NASONEX [Concomitant]

REACTIONS (5)
  - Deep vein thrombosis [Recovering/Resolving]
  - Oedema peripheral [Recovering/Resolving]
  - Pyrexia [Unknown]
  - Contusion [Unknown]
  - Night sweats [Unknown]
